FAERS Safety Report 5196124-4 (Version None)
Quarter: 2006Q4

REPORT INFORMATION
  Report Type: 
  Country: None (occurrence: None)
  Receive Date: 20061220
  Receipt Date: 20061113
  Transmission Date: 20070319
  Serious: Yes (Hospitalization, Disabling)
  Sender: FDA-Public Use
  Company Number: WAES 0611USA04018

PATIENT
  Age: 38 Year
  Sex: Male

DRUGS (1)
  1. TAB SITAGLIPTIN PHOSPHATE [Suspect]
     Indication: DIABETES MELLITUS NON-INSULIN-DEPENDENT
     Dosage: 100 MG/DAILY PO
     Route: 048
     Dates: start: 20060928, end: 20061031

REACTIONS (1)
  - HEMIPLEGIA [None]
